FAERS Safety Report 19843052 (Version 1)
Quarter: 2021Q3

REPORT INFORMATION
  Report Type: Spontaneous
  Country: US (occurrence: US)
  Receive Date: 20210916
  Receipt Date: 20210916
  Transmission Date: 20211014
  Serious: Yes (Hospitalization, Other)
  Sender: FDA-Public Use
  Company Number: US-PFIZER INC-202101152479

PATIENT
  Age: 76 Year
  Sex: Male

DRUGS (5)
  1. BACITRACIN. [Suspect]
     Active Substance: BACITRACIN
     Indication: ABDOMINAL WALL MASS
     Dosage: UNK
  2. SILVER NITRATE. [Suspect]
     Active Substance: SILVER NITRATE
     Indication: SKIN PAPILLOMA
     Dosage: UNK
  3. DOXYCYCLINE HYCLATE. [Suspect]
     Active Substance: DOXYCYCLINE HYCLATE
     Indication: CELLULITIS
     Dosage: UNK
  4. BETAMETHASONE CLOTRIMAZOLE [Suspect]
     Active Substance: BETAMETHASONE DIPROPIONATE\CLOTRIMAZOLE
     Indication: FUNGAL INFECTION
     Dosage: UNK
  5. HYDROGEN PEROXIDE. [Suspect]
     Active Substance: HYDROGEN PEROXIDE
     Indication: SKIN PAPILLOMA
     Dosage: UNK

REACTIONS (4)
  - Nausea [Unknown]
  - Syncope [Unknown]
  - Vomiting [Unknown]
  - Drug ineffective [Unknown]
